FAERS Safety Report 8271245-8 (Version None)
Quarter: 2012Q2

REPORT INFORMATION
  Report Type: 
  Country: None (occurrence: None)
  Receive Date: 20120410
  Receipt Date: 20120403
  Transmission Date: 20120825
  Serious: Yes (Other)
  Sender: FDA-Public Use
  Company Number: US-PFIZER INC-2012036269

PATIENT
  Sex: Male
  Weight: 84.354 kg

DRUGS (5)
  1. DIVALPROEX SODIUM [Concomitant]
     Dosage: UNK
  2. NEURONTIN [Suspect]
     Indication: AFFECTIVE DISORDER
     Dosage: 1200MG IN MORNING, 1200MG IN THE AFTERNOON AND 400MG AT NIGHT
     Route: 048
     Dates: start: 20020101, end: 20120204
  3. PROPRANOLOL [Concomitant]
     Dosage: UNK
  4. CLONAZEPAM [Concomitant]
     Dosage: UNK
  5. PARNATE [Concomitant]
     Dosage: UNK

REACTIONS (11)
  - CONFUSIONAL STATE [None]
  - PRODUCT COATING ISSUE [None]
  - DIARRHOEA [None]
  - HEPATIC ENZYME INCREASED [None]
  - RENAL PAIN [None]
  - MEMORY IMPAIRMENT [None]
  - OROPHARYNGEAL PAIN [None]
  - LETHARGY [None]
  - PRODUCT TASTE ABNORMAL [None]
  - CHROMATURIA [None]
  - DIZZINESS [None]
